FAERS Safety Report 8200150-8 (Version None)
Quarter: 2012Q1

REPORT INFORMATION
  Report Type: 
  Country: None (occurrence: None)
  Receive Date: 20120309
  Receipt Date: 20120309
  Transmission Date: 20120608
  Serious: Yes (Other)
  Sender: FDA-Public Use
  Company Number: None

PATIENT
  Age: 64 Year
  Sex: Female
  Weight: 86.1834 kg

DRUGS (1)
  1. LISINOPRIL [Suspect]
     Indication: HYPERTENSION
     Dosage: 10 MG 1 DAILY ORAL
     Route: 048
     Dates: start: 20120131, end: 20120205

REACTIONS (10)
  - EYE IRRITATION [None]
  - EYE PAIN [None]
  - NECK PAIN [None]
  - COUGH [None]
  - EYE SWELLING [None]
  - DYSGEUSIA [None]
  - RASH [None]
  - SINUS CONGESTION [None]
  - CHOKING [None]
  - LOCAL SWELLING [None]
